FAERS Safety Report 9715280 (Version 2)
Quarter: 2014Q4

REPORT INFORMATION
  Report Type: Spontaneous
  Country: US (occurrence: US)
  Receive Date: 20131127
  Receipt Date: 20141003
  Transmission Date: 20150529
  Serious: Yes (Other)
  Sender: FDA-Public Use
  Company Number: US-AMGEN-USASP2013083256

PATIENT
  Age: 79 Year
  Sex: Female

DRUGS (1)
  1. ENBREL [Suspect]
     Active Substance: ETANERCEPT
     Indication: RHEUMATOID ARTHRITIS
     Dosage: 50 MG, THREE TIMES PER MONTH
     Route: 065
     Dates: start: 20000101

REACTIONS (3)
  - Neoplasm malignant [Unknown]
  - Cataract [Recovered/Resolved]
  - Basal cell carcinoma [Recovered/Resolved]
